FAERS Safety Report 9832861 (Version 1)
Quarter: 2014Q1

REPORT INFORMATION
  Report Type: Spontaneous
  Country: GB (occurrence: GB)
  Receive Date: 20140121
  Receipt Date: 20140121
  Transmission Date: 20141002
  Serious: Yes (Life-Threatening, Hospitalization, Disabling, Other)
  Sender: FDA-Public Use
  Company Number: GB-US-EMD SERONO, INC.-7263501

PATIENT
  Age: 44 Year
  Sex: 0

DRUGS (1)
  1. REBIF [Suspect]
     Indication: MULTIPLE SCLEROSIS
     Route: 058
     Dates: start: 2003, end: 20131218

REACTIONS (11)
  - Thrombotic microangiopathy [Not Recovered/Not Resolved]
  - Thrombotic thrombocytopenic purpura [Not Recovered/Not Resolved]
  - Haemolytic uraemic syndrome [Not Recovered/Not Resolved]
  - Microangiopathic haemolytic anaemia [Not Recovered/Not Resolved]
  - Myocardial ischaemia [Not Recovered/Not Resolved]
  - Cerebrovascular accident [Unknown]
  - Renal impairment [Unknown]
  - Hypertension [Unknown]
  - Nervous system disorder [Unknown]
  - Malaise [Unknown]
  - Headache [Unknown]
